FAERS Safety Report 5241959-2 (Version None)
Quarter: 2007Q1

REPORT INFORMATION
  Report Type: 
  Country: None (occurrence: None)
  Receive Date: 20070220
  Receipt Date: 20070207
  Transmission Date: 20070707
  Serious: Yes (Other)
  Sender: FDA-Public Use
  Company Number: FR-BOEHRINGER INGELHEIM PHARMACEUTICALS, INC.-2007-FF-00217FF

PATIENT
  Sex: Male
  Weight: 92 kg

DRUGS (7)
  1. SPIRIVA [Suspect]
     Indication: CHRONIC OBSTRUCTIVE PULMONARY DISEASE
     Route: 055
     Dates: start: 20060603, end: 20070202
  2. INSULATARD [Concomitant]
     Indication: DIABETES MELLITUS NON-INSULIN-DEPENDENT
     Dosage: 16 TO 20 UI PER DAY
     Dates: start: 20021010
  3. EUPRESSYL [Concomitant]
     Indication: HYPERTENSION
     Dates: start: 19990124
  4. ALDALIX [Concomitant]
     Indication: HYPERTENSION
     Dates: start: 19990911
  5. ZANIDIP [Concomitant]
     Indication: HYPERTENSION
     Dates: start: 20040515
  6. VASTAREL [Concomitant]
     Indication: ANGINA PECTORIS
     Dates: start: 19990724
  7. KARDEGIC [Concomitant]

REACTIONS (2)
  - DRY MOUTH [None]
  - THIRST [None]
